FAERS Safety Report 8582821-7 (Version None)
Quarter: 2012Q3

REPORT INFORMATION
  Report Type: 
  Country: None (occurrence: None)
  Receive Date: 20120809
  Receipt Date: 20120730
  Transmission Date: 20120928
  Serious: No
  Sender: FDA-Public Use
  Company Number: US-ASTRAZENECA-2012SE53775

PATIENT
  Age: 68 Year
  Sex: Female
  Weight: 66.2 kg

DRUGS (4)
  1. ZETIA [Suspect]
  2. NEXIUM [Suspect]
     Indication: GASTROOESOPHAGEAL REFLUX DISEASE
     Route: 048
     Dates: start: 20020101, end: 20110101
  3. OMEPRAZOLE [Suspect]
     Indication: GASTROOESOPHAGEAL REFLUX DISEASE
     Route: 048
     Dates: start: 20120201, end: 20120401
  4. OMEPRAZOLE [Suspect]
     Route: 048
     Dates: start: 20120701

REACTIONS (8)
  - CONFUSIONAL STATE [None]
  - ANXIETY [None]
  - DEMENTIA [None]
  - DYSPNOEA [None]
  - PALPITATIONS [None]
  - AMNESIA [None]
  - PAIN [None]
  - CARDIAC DISORDER [None]
